FAERS Safety Report 20653560 (Version 1)
Quarter: 2022Q1

REPORT INFORMATION
  Report Type: Spontaneous
  Country: SK (occurrence: SK)
  Receive Date: 20220330
  Receipt Date: 20220330
  Transmission Date: 20220423
  Serious: Yes (Other)
  Sender: FDA-Public Use
  Company Number: SK-PFIZER INC-202200430674

PATIENT
  Sex: Female

DRUGS (1)
  1. XALKORI [Suspect]
     Active Substance: CRIZOTINIB
     Indication: Lung adenocarcinoma
     Dosage: 250 MG, 2X/DAY (FULL DOSE WITHOUT REDUCTION)
     Dates: start: 202010, end: 202108

REACTIONS (2)
  - Hydrothorax [Recovered/Resolved]
  - Neoplasm progression [Recovered/Resolved]
